FAERS Safety Report 8369432-3 (Version None)
Quarter: 2012Q2

REPORT INFORMATION
  Report Type: 
  Country: None (occurrence: None)
  Receive Date: 20120516
  Receipt Date: 20120516
  Transmission Date: 20120825
  Serious: Yes (Death, Life-Threatening, Hospitalization)
  Sender: FDA-Public Use
  Company Number: None

PATIENT
  Weight: 83.9154 kg

DRUGS (1)
  1. AZATHIOPRINE [Suspect]
     Indication: COLITIS ULCERATIVE
     Dosage: 4.5 TABLETS -225 EVERY MORNING PO
     Route: 048
     Dates: start: 20050101, end: 20111031

REACTIONS (2)
  - COUGH [None]
  - LYMPHOMA [None]
